FAERS Safety Report 20047755 (Version 1)
Quarter: 2021Q4

REPORT INFORMATION
  Report Type: Spontaneous
  Country: US (occurrence: US)
  Receive Date: 20211109
  Receipt Date: 20211109
  Transmission Date: 20220304
  Serious: No
  Sender: FDA-Public Use
  Company Number: US-BAYER-2021A244886

PATIENT
  Age: 76 Year
  Sex: Female

DRUGS (4)
  1. MIRALAX [Suspect]
     Active Substance: POLYETHYLENE GLYCOL 3350
     Indication: Constipation
     Dosage: 1 AND A HALF OF TEASPOON OF POWDER AND A FULL GLASS OF WATER
     Route: 048
     Dates: start: 20210925, end: 20211030
  2. MIRALAX [Suspect]
     Active Substance: POLYETHYLENE GLYCOL 3350
     Indication: Diverticulitis
  3. LAXEL [Concomitant]
  4. LIPITOR [Concomitant]
     Active Substance: ATORVASTATIN CALCIUM

REACTIONS (2)
  - Drug ineffective [Unknown]
  - Incorrect dose administered [None]

NARRATIVE: CASE EVENT DATE: 20210925
